FAERS Safety Report 9045534 (Version 1)
Quarter: 2013Q1

REPORT INFORMATION
  Report Type: Report from Study
  Country: US (occurrence: US)
  Receive Date: 20130131
  Receipt Date: 20130131
  Transmission Date: 20140127
  Serious: No
  Sender: FDA-Public Use
  Company Number: US-ABBOTT-12P-163-1004938-00

PATIENT
  Age: 45 Year
  Sex: Male

DRUGS (4)
  1. HUMIRA [Suspect]
     Indication: CROHN^S DISEASE
     Dates: start: 20121018
  2. PREDNISONE [Concomitant]
     Indication: CROHN^S DISEASE
  3. MORPHINE [Concomitant]
     Indication: PAIN
     Dosage: ONCE EVERY 12 HRS AS NEEDED
  4. LISINOPRIL [Concomitant]
     Indication: BLOOD PRESSURE

REACTIONS (6)
  - Haemorrhage [Not Recovered/Not Resolved]
  - Frequent bowel movements [Not Recovered/Not Resolved]
  - Abdominal distension [Not Recovered/Not Resolved]
  - Hyperhidrosis [Not Recovered/Not Resolved]
  - Pyrexia [Not Recovered/Not Resolved]
  - Anorectal discomfort [Not Recovered/Not Resolved]
